FAERS Safety Report 4443036-7 (Version None)
Quarter: 2004Q3

REPORT INFORMATION
  Report Type: 
  Country: None (occurrence: None)
  Receive Date: 20040903
  Receipt Date: 20040629
  Transmission Date: 20050211
  Serious: Yes (Other)
  Sender: FDA-Public Use
  Company Number: 2004UW13479

PATIENT
  Sex: Female

DRUGS (2)
  1. CRESTOR [Suspect]
  2. CORTEF [Concomitant]

REACTIONS (1)
  - POLYMYALGIA [None]
